FAERS Safety Report 8377531-5 (Version None)
Quarter: 2012Q2

REPORT INFORMATION
  Report Type: 
  Country: None (occurrence: None)
  Receive Date: 20120522
  Receipt Date: 20120510
  Transmission Date: 20120825
  Serious: Yes (Other)
  Sender: FDA-Public Use
  Company Number: DE-ROCHE-1022674

PATIENT
  Sex: Female
  Weight: 57 kg

DRUGS (6)
  1. BENDAMUSTINE [Suspect]
     Indication: B-CELL LYMPHOMA
     Dates: start: 20100531, end: 20101231
  2. CYCLOPHOSPHAMIDE [Suspect]
     Indication: B-CELL LYMPHOMA
     Dates: start: 20081113, end: 20090406
  3. VINCRISTINE [Suspect]
     Indication: B-CELL LYMPHOMA
     Dates: start: 20081113, end: 20090406
  4. PREDNISONE [Suspect]
     Indication: B-CELL LYMPHOMA
     Dates: start: 20081113, end: 20090406
  5. MABTHERA [Suspect]
     Indication: B-CELL LYMPHOMA
     Route: 042
     Dates: start: 20110307, end: 20110307
  6. DOXORUBICIN HCL [Suspect]
     Indication: B-CELL LYMPHOMA
     Dates: start: 20081113, end: 20090406

REACTIONS (1)
  - B-CELL LYMPHOMA RECURRENT [None]
